FAERS Safety Report 7795155-5 (Version None)
Quarter: 2011Q4

REPORT INFORMATION
  Report Type: 
  Country: None (occurrence: None)
  Receive Date: 20111004
  Receipt Date: 20110926
  Transmission Date: 20120403
  Serious: Yes (Other)
  Sender: FDA-Public Use
  Company Number: DE-AMGEN-DEUSP2011037099

PATIENT
  Sex: Female
  Weight: 80 kg

DRUGS (4)
  1. THYROXIN [Concomitant]
     Indication: THYROIDECTOMY
     Dosage: 75 MUG, QD
     Route: 048
     Dates: start: 19860101
  2. CALCIMAGON                         /00108001/ [Concomitant]
     Indication: OSTEOPOROSIS
     Dosage: 500 MG, BID
     Route: 048
     Dates: start: 20070709
  3. PROLIA [Suspect]
     Indication: OSTEOPOROSIS
     Dosage: 60 MG, ONE TIME DOSE
     Route: 058
     Dates: start: 20110708, end: 20110708
  4. DEKRISTOL [Concomitant]
     Indication: OSTEOPOROSIS
     Dosage: 20000 IU, ONE TIME DOSE
     Route: 048
     Dates: start: 20110705

REACTIONS (2)
  - IMPAIRED HEALING [None]
  - TOOTH EXTRACTION [None]
